FAERS Safety Report 21737841 (Version 7)
Quarter: 2023Q2

REPORT INFORMATION
  Report Type: Report from Study
  Country: ZA (occurrence: None)
  Receive Date: 20221216
  Receipt Date: 20230626
  Transmission Date: 20230721
  Serious: Yes (Hospitalization)
  Sender: FDA-Public Use
  Company Number: ZA-ROCHE-3239780

PATIENT
  Age: 63 Year
  Sex: Female
  Weight: 118 kg

DRUGS (8)
  1. PERTUZUMAB\TRASTUZUMAB [Suspect]
     Active Substance: PERTUZUMAB\TRASTUZUMAB
     Indication: Breast cancer
     Dosage: DOSE: 1200 AND 600 MG?ON 02/DEC/2022, START AND END DATE OF MOST RECENT DOSE OF STUDY DRUG PRIOR TO
     Route: 058
     Dates: start: 20221202
  2. DOCETAXEL [Suspect]
     Active Substance: DOCETAXEL
     Indication: Breast cancer
     Dosage: ON 02/DEC/2022, MOST RECENT DOSE (600 MG) OF STUDY DRUG PRIOR TO AE/SAE
     Route: 042
     Dates: start: 20221202
  3. CARBOPLATIN [Suspect]
     Active Substance: CARBOPLATIN
     Indication: Breast cancer
     Dosage: ON 02/DEC/2022, MOST RECENT DOSE (1200 MG) OF STUDY DRUG PRIOR TO AE/SAE
     Route: 042
     Dates: start: 20221202
  4. PERINDOPRIL ERBUMINE [Concomitant]
     Active Substance: PERINDOPRIL ERBUMINE
     Route: 048
     Dates: start: 201907
  5. GRANISETRON [Concomitant]
     Active Substance: GRANISETRON
     Indication: Premedication
     Route: 042
     Dates: start: 20221202, end: 20221202
  6. LASIX [Concomitant]
     Active Substance: FUROSEMIDE
     Indication: Fluid retention
     Route: 048
     Dates: start: 2021
  7. PANTOPRAZOLE SODIUM [Concomitant]
     Active Substance: PANTOPRAZOLE SODIUM
     Indication: Nausea
     Route: 048
     Dates: start: 20221205
  8. ONDANSETRON HYDROCHLORIDE [Concomitant]
     Active Substance: ONDANSETRON HYDROCHLORIDE
     Indication: Nausea
     Route: 048
     Dates: start: 20221205

REACTIONS (1)
  - Dehydration [Recovered/Resolved]

NARRATIVE: CASE EVENT DATE: 20221207
